FAERS Safety Report 5187736-2 (Version None)
Quarter: 2006Q4

REPORT INFORMATION
  Report Type: 
  Country: None (occurrence: None)
  Receive Date: 20061214
  Receipt Date: 20061201
  Transmission Date: 20070319
  Serious: Yes (Hospitalization)
  Sender: FDA-Public Use
  Company Number: 233674

PATIENT
  Age: 81 Year
  Sex: Male

DRUGS (6)
  1. AVASTIN [Suspect]
     Indication: COLON CANCER
     Dosage: 446 MG, Q2W, INTRAVENOUS
     Route: 042
     Dates: start: 20061004
  2. FLUOROURACIL [Suspect]
     Indication: COLON CANCER
     Dosage: 825 MG, Q2W, INTRAVENOUS
     Route: 042
     Dates: start: 20061004
  3. OXALIPLATIN [Suspect]
     Indication: COLON CANCER
     Dosage: 180 MG, Q2W, INTRAVENOUS
     Route: 042
     Dates: start: 20061004
  4. LEUCOVORIN CALCIUM [Suspect]
     Indication: COLON CANCER
     Dosage: 825 MG, Q2W, INTRAVENOUS
     Route: 042
     Dates: start: 20061004
  5. CARDIZEM [Suspect]
     Indication: HYPERTENSION
     Dosage: 240 MG,
  6. AVALIDE [Concomitant]

REACTIONS (9)
  - CHILLS [None]
  - DIZZINESS [None]
  - DYSPNOEA [None]
  - FEBRILE NEUTROPENIA [None]
  - HEADACHE [None]
  - HYPERTENSION [None]
  - JOINT SWELLING [None]
  - PLEURAL EFFUSION [None]
  - PRODUCTIVE COUGH [None]
